FAERS Safety Report 5193708-4 (Version None)
Quarter: 2006Q4

REPORT INFORMATION
  Report Type: 
  Country: None (occurrence: None)
  Receive Date: 20061222
  Receipt Date: 20061218
  Transmission Date: 20070319
  Serious: Yes (Hospitalization)
  Sender: FDA-Public Use
  Company Number: 2006PV027148

PATIENT
  Age: 50 Year
  Sex: Female

DRUGS (1)
  1. BYETTA [Suspect]
     Indication: DRUG USE FOR UNKNOWN INDICATION
     Dosage: 5 MCG
     Dates: start: 20051214, end: 20061217

REACTIONS (3)
  - ASTHENIA [None]
  - CEREBROVASCULAR ACCIDENT [None]
  - DYSPHASIA [None]
